FAERS Safety Report 6476499-6 (Version None)
Quarter: 2009Q4

REPORT INFORMATION
  Report Type: 
  Country: None (occurrence: None)
  Receive Date: 20091207
  Receipt Date: 20091202
  Transmission Date: 20100525
  Serious: Yes (Death)
  Sender: FDA-Public Use
  Company Number: JP-JNJFOC-20091201676

PATIENT

DRUGS (3)
  1. ITRIZOLE [Suspect]
     Indication: FUNGAL INFECTION
     Route: 042
     Dates: start: 20090521, end: 20090524
  2. PANSPORIN [Concomitant]
     Indication: DRUG USE FOR UNKNOWN INDICATION
     Route: 065
     Dates: start: 20090513, end: 20090517
  3. FINIBAX [Concomitant]
     Indication: BACTERIAL INFECTION
     Route: 065
     Dates: start: 20090518, end: 20090523

REACTIONS (1)
  - RENAL IMPAIRMENT [None]
